FAERS Safety Report 10042175 (Version 1)
Quarter: 2014Q1

REPORT INFORMATION
  Report Type: Spontaneous
  Country: US (occurrence: US)
  Receive Date: 20140327
  Receipt Date: 20140327
  Transmission Date: 20141002
  Serious: Yes (Death)
  Sender: FDA-Public Use
  Company Number: US-GLAXOSMITHKLINE-A1065869A

PATIENT
  Age: 85 Year
  Sex: Male

DRUGS (4)
  1. COREG CR [Suspect]
     Indication: PRODUCT USED FOR UNKNOWN INDICATION
     Route: 048
  2. RANEXA [Concomitant]
  3. NITROGLYCERIN [Concomitant]
  4. MORPHINE [Concomitant]

REACTIONS (4)
  - Death [Fatal]
  - Tuberculosis [Unknown]
  - Weight decreased [Unknown]
  - Decreased appetite [Unknown]
